FAERS Safety Report 8185224-2 (Version None)
Quarter: 2012Q1

REPORT INFORMATION
  Report Type: 
  Country: None (occurrence: None)
  Receive Date: 20120305
  Receipt Date: 20120223
  Transmission Date: 20120608
  Serious: Yes (Hospitalization)
  Sender: FDA-Public Use
  Company Number: PHHY2011DE43476

PATIENT
  Sex: Female
  Weight: 75 kg

DRUGS (4)
  1. SIMVASTATIN [Concomitant]
     Indication: BLOOD CHOLESTEROL
     Dosage: 20 MG/DAY
  2. SANDOSTATIN LAR [Suspect]
     Indication: ACROMEGALY
     Dosage: 30 MG, QMO
     Route: 030
     Dates: start: 20070101
  3. CABERGOLINE [Concomitant]
     Dosage: 0.5 MG/3 TIMES PER WEEK
  4. AMLODIPINE BESYLATE AND OLMESARTAN MEDOXOMIL [Concomitant]
     Indication: HYPERTENSION
     Dosage: 20 MG/DAY

REACTIONS (1)
  - DIVERTICULITIS [None]
